FAERS Safety Report 4818413-2 (Version None)
Quarter: 2005Q4

REPORT INFORMATION
  Report Type: 
  Country: None (occurrence: None)
  Receive Date: 20051031
  Receipt Date: 20050909
  Transmission Date: 20060501
  Serious: Yes (Life-Threatening, Hospitalization)
  Sender: FDA-Public Use
  Company Number: TPA2005A01032

PATIENT
  Age: 54 Year
  Sex: Male
  Weight: 66.2252 kg

DRUGS (4)
  1. ACTOS [Suspect]
     Indication: DIABETES MELLITUS NON-INSULIN-DEPENDENT
     Dosage: 1 IN 1 D, PER ORAL
     Route: 048
     Dates: end: 20050801
  2. TACROLIMUS (TACROLIMUS) [Concomitant]
  3. FLORINEF (FLUDROCORTISONE ACETATE) (0.1 MILLIGRAM) [Concomitant]
  4. LEVOTHYROXINE (LEVOTHYROXINE) (25 MICROGRAM) [Concomitant]

REACTIONS (19)
  - ABASIA [None]
  - ALANINE AMINOTRANSFERASE INCREASED [None]
  - ASPARTATE AMINOTRANSFERASE INCREASED [None]
  - ASTHENIA [None]
  - BALANCE DISORDER [None]
  - BLOOD ALKALINE PHOSPHATASE INCREASED [None]
  - BLOOD BILIRUBIN INCREASED [None]
  - BLOOD GLUCOSE INCREASED [None]
  - BLOOD MAGNESIUM DECREASED [None]
  - DECREASED APPETITE [None]
  - DIZZINESS [None]
  - DRUG TOXICITY [None]
  - FATIGUE [None]
  - HEPATIC FAILURE [None]
  - HEPATIC FUNCTION ABNORMAL [None]
  - HEPATITIS C [None]
  - HEPATOTOXICITY [None]
  - ORTHOSTATIC HYPOTENSION [None]
  - PRURITUS GENERALISED [None]
